FAERS Safety Report 6116110-7 (Version None)
Quarter: 2009Q1

REPORT INFORMATION
  Report Type: 
  Country: None (occurrence: None)
  Receive Date: 20090314
  Receipt Date: 20081211
  Transmission Date: 20090719
  Serious: Yes (Hospitalization, Other)
  Sender: FDA-Public Use
  Company Number: US-ABBOTT-08P-163-0490335-00

PATIENT
  Sex: Female
  Weight: 108.96 kg

DRUGS (13)
  1. HUMIRA [Suspect]
     Indication: RHEUMATOID ARTHRITIS
     Route: 058
     Dates: start: 20060101, end: 20080601
  2. HUMIRA [Suspect]
     Indication: RHEUMATOID ARTHRITIS
     Route: 058
     Dates: start: 20080601
  3. METHOTREXATE [Concomitant]
     Indication: RHEUMATOID ARTHRITIS
     Route: 048
  4. VALPROATE SODIUM [Concomitant]
     Indication: CONVULSION
     Route: 048
  5. DILANTIN [Concomitant]
     Indication: CONVULSION
     Route: 048
     Dates: start: 19630101
  6. FOLIC ACID [Concomitant]
     Indication: VITAMIN SUPPLEMENTATION
     Route: 048
  7. PRINZIDE [Concomitant]
     Indication: HYPERTENSION
     Dosage: 10/12.5
     Route: 048
  8. GUANFACINE HYDROCHLORIDE [Concomitant]
     Indication: HYPERTENSION
     Route: 048
  9. LEVOTHYROXINE SODIUM [Concomitant]
     Indication: HYPOTHYROIDISM
     Route: 048
  10. LEVOTHYROXINE SODIUM [Concomitant]
     Indication: GOITRE
  11. ACETYLSALICYLIC ACID [Concomitant]
     Indication: KNEE ARTHROPLASTY
     Route: 048
     Dates: start: 20071001
  12. TROSPIUM CHLORIDE [Concomitant]
     Indication: HYPERTONIC BLADDER
     Route: 048
  13. LEKOVIT CA [Concomitant]
     Indication: MINERAL SUPPLEMENTATION
     Route: 048

REACTIONS (6)
  - ARTHROPATHY [None]
  - CATARACT [None]
  - INCORRECT DOSE ADMINISTERED [None]
  - INJECTION SITE ERYTHEMA [None]
  - INJECTION SITE PAPULE [None]
  - PAIN [None]
